FAERS Safety Report 9704923 (Version 3)
Quarter: 2015Q1

REPORT INFORMATION
  Report Type: Not Available
  Country: US (occurrence: US)
  Receive Date: 20131122
  Receipt Date: 20150217
  Transmission Date: 20150721
  Serious: No
  Sender: FDA-Public Use
  Company Number: US-AMARIN PHARMA, INC.-2013AMR000063

PATIENT
  Sex: Female

DRUGS (4)
  1. VASCEPA [Suspect]
     Active Substance: ETHYL ICOSAPENTATE
     Route: 065
     Dates: start: 20130823, end: 20130903
  2. VASCEPA [Suspect]
     Active Substance: ETHYL ICOSAPENTATE
     Route: 065
     Dates: start: 20130903
  3. LOVAZA [Concomitant]
     Active Substance: OMEGA-3-ACID ETHYL ESTERS
     Indication: PRODUCT USED FOR UNKNOWN INDICATION
     Route: 065
     Dates: end: 20130822
  4. VASCEPA [Suspect]
     Active Substance: ETHYL ICOSAPENTATE
     Indication: BLOOD CHOLESTEROL INCREASED
     Route: 065
     Dates: start: 20130823, end: 20130823

REACTIONS (1)
  - Pruritus generalised [Recovered/Resolved]

NARRATIVE: CASE EVENT DATE: 20130825
